FAERS Safety Report 8328669-X (Version None)
Quarter: 2012Q2

REPORT INFORMATION
  Report Type: 
  Country: None (occurrence: None)
  Receive Date: 20120430
  Receipt Date: 20120420
  Transmission Date: 20120825
  Serious: Yes (Life-Threatening, Other)
  Sender: FDA-Public Use
  Company Number: 2012MA005354

PATIENT
  Age: 47 Year
  Sex: Male

DRUGS (7)
  1. BISOPROLOL FUMARATE [Concomitant]
  2. ACETAMINOPHEN [Concomitant]
  3. LANSOPRAZOLE [Concomitant]
  4. GABAPENTIN [Suspect]
     Indication: NEURALGIA
     Dates: start: 20110901, end: 20120401
  5. BENDROFLUMETHIAZIDE [Concomitant]
  6. NUROPEN [Concomitant]
  7. RAMIPRIL [Concomitant]

REACTIONS (7)
  - DEPRESSION [None]
  - ANXIETY [None]
  - AMNESIA [None]
  - SUICIDAL IDEATION [None]
  - MARITAL PROBLEM [None]
  - HOSTILITY [None]
  - SLEEP DISORDER [None]
